FAERS Safety Report 20327576 (Version 2)
Quarter: 2022Q1

REPORT INFORMATION
  Report Type: Spontaneous
  Country: None (occurrence: US)
  Receive Date: 20220112
  Receipt Date: 20220119
  Transmission Date: 20220423
  Serious: No
  Sender: FDA-Public Use
  Company Number: US-B.Braun Medical Inc.-2123846

PATIENT
  Sex: Female

DRUGS (7)
  1. STERILE WATER [Suspect]
     Active Substance: WATER
  2. MAGNESIUM [Concomitant]
     Active Substance: MAGNESIUM
     Route: 042
     Dates: start: 20211207
  3. CALCIUM [Concomitant]
     Active Substance: CALCIUM
     Route: 042
     Dates: start: 20211207
  4. VITAMIN C [Concomitant]
     Active Substance: ASCORBIC ACID
     Route: 042
     Dates: start: 20211207
  5. ZINC [Concomitant]
     Active Substance: ZINC
     Route: 042
     Dates: start: 20211207
  6. FOLIC ACID [Concomitant]
     Active Substance: FOLIC ACID
     Route: 042
     Dates: start: 20211207
  7. VITAMIN B COMPLEX [Concomitant]
     Active Substance: CYANOCOBALAMIN\DEXPANTHENOL\NIACINAMIDE\PYRIDOXINE HYDROCHLORIDE\RIBOFLAVIN 5^-PHOSPHATE SODIUM\THIA
     Route: 042
     Dates: start: 20211207

REACTIONS (2)
  - Tremor [Recovered/Resolved]
  - Fatigue [Recovered/Resolved]
